FAERS Safety Report 4397531-X (Version None)
Quarter: 2004Q2

REPORT INFORMATION
  Report Type: 
  Country: None (occurrence: None)
  Receive Date: 20040621
  Receipt Date: 20040721
  Transmission Date: 20050107
  Serious: Yes (Death, Other)
  Sender: FDA-Public Use
  Company Number: USA-2004-0012511

PATIENT
  Age: 42 Year
  Sex: Female
  Weight: 115.6 kg

DRUGS (7)
  1. OXYCONTIN [Suspect]
     Dosage: UNK UNK, UNK, UNKNOWN
     Route: 065
  2. PERCOCET [Suspect]
     Indication: PAIN
     Dosage: 10 MG, Q4-6H, UNKNOWN
     Route: 065
  3. COCAINE (COCAINE) [Suspect]
     Dosage: UNK UNK, UNK, UNKNOWN
     Route: 065
  4. PROZAC [Concomitant]
  5. GEODON [Concomitant]
  6. PREVACID [Concomitant]
  7. VALIUM [Concomitant]

REACTIONS (2)
  - MULTIPLE DRUG OVERDOSE ACCIDENTAL [None]
  - POLYSUBSTANCE ABUSE [None]
